FAERS Safety Report 8785579 (Version 3)
Quarter: 2013Q2

REPORT INFORMATION
  Report Type: Report from Study
  Country: JP (occurrence: JP)
  Receive Date: 20120914
  Receipt Date: 20130613
  Transmission Date: 20140414
  Serious: Yes (Other)
  Sender: FDA-Public Use
  Company Number: JP-009507513-1209JPN000689

PATIENT
  Age: 64 Year
  Sex: Female
  Weight: 63 kg

DRUGS (13)
  1. PEGINTRON [Suspect]
     Indication: CHRONIC HEPATITIS C
     Dosage: 1.6 MICROGRAM PER KILOGRAM, QW
     Route: 058
     Dates: start: 20120615, end: 20120629
  2. PEGINTRON [Suspect]
     Dosage: 1.3 MICROGRAM PER KILOGRAM, QW
     Route: 058
     Dates: start: 20120706, end: 20120727
  3. REBETOL [Suspect]
     Indication: CHRONIC HEPATITIS C
     Dosage: 600 MG, QD
     Route: 048
     Dates: start: 20120615, end: 20120727
  4. REBETOL [Suspect]
     Dosage: 400 MG, QD
     Route: 048
     Dates: start: 20120728, end: 20120803
  5. TELAVIC [Suspect]
     Indication: CHRONIC HEPATITIS C
     Dosage: 1500 MG, QD
     Route: 048
     Dates: start: 20120615, end: 20120727
  6. TELAVIC [Suspect]
     Dosage: 1000 MG, QD
     Route: 048
     Dates: start: 20120728, end: 20120803
  7. LIVACT [Concomitant]
     Indication: CHRONIC HEPATITIS C
     Dosage: 7.5 G, QD , FORMULATION : POR
     Route: 048
  8. TALION (BEPOTASTINE BESYLATE) [Concomitant]
     Indication: PROPHYLAXIS
     Dosage: 20 MG, QD
     Route: 048
     Dates: start: 20120614, end: 20120618
  9. MYSER (DIFLUPREDNATE) [Concomitant]
     Indication: DRUG ERUPTION
     Dosage: EXT
     Route: 051
     Dates: start: 20120617, end: 20120621
  10. ALLELOCK [Concomitant]
     Indication: URTICARIA
     Dosage: 10 MG, QD
     Route: 048
     Dates: start: 20120618, end: 20120809
  11. ALLELOCK [Concomitant]
     Indication: DRUG ERUPTION
  12. ZYLORIC [Concomitant]
     Indication: HYPERURICAEMIA
     Dosage: 100 MG, QD
     Route: 048
     Dates: start: 20120618
  13. ARGAMATE JELLY [Concomitant]
     Indication: HYPERKALAEMIA
     Dosage: 50 G, QD
     Route: 048
     Dates: start: 20120806, end: 20120811

REACTIONS (3)
  - Anaemia [Recovered/Resolved]
  - Hyperkalaemia [Recovered/Resolved]
  - Renal impairment [Recovered/Resolved]
